FAERS Safety Report 4877461-7 (Version None)
Quarter: 2006Q1

REPORT INFORMATION
  Report Type: 
  Country: None (occurrence: None)
  Receive Date: 20060111
  Receipt Date: 20051230
  Transmission Date: 20060701
  Serious: Yes (Hospitalization)
  Sender: FDA-Public Use
  Company Number: FR-JNJFOC-20060100035

PATIENT
  Age: 63 Year
  Sex: Male

DRUGS (11)
  1. PEVARYL [Suspect]
     Indication: DRUG USE FOR UNKNOWN INDICATION
     Dosage: 1% CREAM.
     Route: 061
  2. KETODERM [Concomitant]
  3. MUPIDERM [Concomitant]
  4. MYCOSTER [Concomitant]
  5. DEXERYL [Concomitant]
  6. DEXERYL [Concomitant]
  7. DEXERYL [Concomitant]
  8. DEXERYL [Concomitant]
  9. BISEPTINE [Concomitant]
  10. BISEPTINE [Concomitant]
  11. BISEPTINE [Concomitant]

REACTIONS (3)
  - ANTIBODY TEST POSITIVE [None]
  - DERMATITIS ALLERGIC [None]
  - HYPERGAMMAGLOBULINAEMIA [None]
